FAERS Safety Report 11208211 (Version 2)
Quarter: 2015Q3

REPORT INFORMATION
  Report Type: Spontaneous
  Country: US (occurrence: US)
  Receive Date: 20150622
  Receipt Date: 20150901
  Transmission Date: 20151125
  Serious: Yes (Hospitalization, Disabling, Other)
  Sender: FDA-Public Use
  Company Number: US-009507513-1203USA02918

PATIENT
  Sex: Female

DRUGS (4)
  1. FOSAMAX [Suspect]
     Active Substance: ALENDRONATE SODIUM
     Dosage: 70 MG, UNK
     Route: 048
     Dates: end: 2008
  2. ALENDRONATE SODIUM. [Suspect]
     Active Substance: ALENDRONATE SODIUM
     Indication: BONE DENSITY DECREASED
     Dosage: 70 MG, UNK
     Route: 048
     Dates: start: 2008
  3. FOSAMAX [Suspect]
     Active Substance: ALENDRONATE SODIUM
     Indication: BONE DENSITY DECREASED
     Dosage: UNK MG, UNK
     Route: 048
     Dates: start: 1996
  4. ALENDRONATE SODIUM. [Suspect]
     Active Substance: ALENDRONATE SODIUM
     Indication: BONE DENSITY DECREASED
     Dosage: 70 MG, UNK
     Route: 048
     Dates: start: 201005

REACTIONS (26)
  - Hypercalcaemia [Unknown]
  - Intervertebral disc protrusion [Unknown]
  - Back disorder [Unknown]
  - Myocardial infarction [Unknown]
  - Hernia repair [Unknown]
  - Acute kidney injury [Unknown]
  - Chronic obstructive pulmonary disease [Unknown]
  - Lipids abnormal [Unknown]
  - Fall [Unknown]
  - Atrial fibrillation [Unknown]
  - Intramedullary rod insertion [Unknown]
  - Bone disorder [Not Recovered/Not Resolved]
  - Breast cancer [Unknown]
  - Coccidioidomycosis [Unknown]
  - Haemorrhagic anaemia [Unknown]
  - Pain in extremity [Unknown]
  - Emphysema [Unknown]
  - Herpes zoster [Unknown]
  - Nodule [Unknown]
  - Femur fracture [Not Recovered/Not Resolved]
  - Muscular weakness [Unknown]
  - Appendicectomy [Unknown]
  - Femur fracture [Unknown]
  - Cholecystectomy [Unknown]
  - Hypertension [Unknown]
  - Open reduction of fracture [Unknown]

NARRATIVE: CASE EVENT DATE: 199805
